FAERS Safety Report 16753501 (Version 2)
Quarter: 2019Q3

REPORT INFORMATION
  Report Type: Report from Study
  Country: None (occurrence: BR)
  Receive Date: 20190829
  Receipt Date: 20190902
  Transmission Date: 20191005
  Serious: Yes (Disabling, Other)
  Sender: FDA-Public Use
  Company Number: BR-ABBVIE-19K-020-2905296-00

PATIENT
  Sex: Female

DRUGS (1)
  1. HUMIRA [Suspect]
     Active Substance: ADALIMUMAB
     Indication: ANKYLOSING SPONDYLITIS
     Route: 058
     Dates: start: 20180713

REACTIONS (6)
  - Bedridden [Recovered/Resolved]
  - Dysphonia [Unknown]
  - Pneumonia [Unknown]
  - Influenza [Unknown]
  - Hypophagia [Unknown]
  - Pulmonary congestion [Unknown]
